FAERS Safety Report 10257752 (Version 1)
Quarter: 2014Q2

REPORT INFORMATION
  Report Type: Report from Study
  Country: NL (occurrence: None)
  Receive Date: 20140620
  Receipt Date: 20140620
  Transmission Date: 20141212
  Serious: Yes (Death, Hospitalization, Other)
  Sender: FDA-Public Use
  Company Number: 2387661

PATIENT
  Age: 53 Year
  Sex: Female

DRUGS (3)
  1. CYTARABINE [Suspect]
     Indication: ACUTE MYELOID LEUKAEMIA
     Route: 042
     Dates: start: 20130515
  2. CLOFARABINE [Suspect]
     Indication: ACUTE MYELOID LEUKAEMIA
     Route: 042
     Dates: start: 20130516
  3. IDARUBICIN [Suspect]
     Indication: ACUTE MYELOID LEUKAEMIA
     Route: 042
     Dates: start: 20130515

REACTIONS (11)
  - Atelectasis [None]
  - Colitis [None]
  - Respiratory failure [None]
  - Bronchopulmonary aspergillosis [None]
  - Blood culture positive [None]
  - Septic shock [None]
  - Atrial fibrillation [None]
  - Haematuria [None]
  - Pleural effusion [None]
  - Pancytopenia [None]
  - Staphylococcus test positive [None]
